FAERS Safety Report 4783068-2 (Version None)
Quarter: 2005Q3

REPORT INFORMATION
  Report Type: 
  Country: None (occurrence: None)
  Receive Date: 20050914
  Receipt Date: 20050503
  Transmission Date: 20060218
  Serious: Yes (Death, Hospitalization)
  Sender: FDA-Public Use
  Company Number: 167-20785-05050193

PATIENT
  Age: 72 Year
  Sex: Male

DRUGS (5)
  1. THALIDOMIDE - PHARMION (THALIDOMIDE) (50 MILLIGRAM, CAPSULES) [Suspect]
     Indication: NON-SMALL CELL LUNG CANCER
     Dosage: 150 MG, DAILY, ORAL
     Route: 048
     Dates: start: 20040703, end: 20050415
  2. CARBOPLATIN [Concomitant]
  3. GEMCITABINE [Concomitant]
  4. QUININE SULFATE [Concomitant]
  5. LORAZEPAM [Concomitant]

REACTIONS (4)
  - DEATH [None]
  - DISEASE PROGRESSION [None]
  - DYSPNOEA [None]
  - PULMONARY EMBOLISM [None]
